FAERS Safety Report 6574604-4 (Version None)
Quarter: 2010Q1

REPORT INFORMATION
  Report Type: 
  Country: None (occurrence: None)
  Receive Date: 20100128
  Receipt Date: 20100120
  Transmission Date: 20100710
  Serious: Yes (Life-Threatening, Hospitalization, Other)
  Sender: FDA-Public Use
  Company Number: THYM-1001156

PATIENT
  Age: 69 Year
  Sex: Male
  Weight: 94 kg

DRUGS (5)
  1. THYMOGLOBULIINE    (ANTI-THYMOCYTE GLOBULIN (RABBIT)) POWDER [Suspect]
     Indication: RENAL TRANSPLANT
     Dosage: 135 MG, INTRAVENOUS
     Route: 042
     Dates: start: 20081229, end: 20090101
  2. TACROLIMUS [Suspect]
     Indication: IMMUNOSUPPRESSION
     Dosage: 18 MG, QD, ORAL, 2.7 MG, QD
     Route: 048
     Dates: start: 20081229, end: 20090103
  3. TACROLIMUS [Suspect]
     Indication: IMMUNOSUPPRESSION
     Dosage: 18 MG, QD, ORAL, 2.7 MG, QD
     Route: 048
     Dates: start: 20090106
  4. CELLCEPT [Suspect]
     Indication: IMMUNOSUPPRESSION
     Dosage: 1000 MG, BID, ORAL
     Route: 048
     Dates: start: 20081229, end: 20090103
  5. DECALFIN H (DECALFIN H) [Concomitant]

REACTIONS (2)
  - PERITONITIS [None]
  - PROCALCITONIN INCREASED [None]
